FAERS Safety Report 9799418 (Version 1)
Quarter: 2014Q1

REPORT INFORMATION
  Report Type: Spontaneous
  Country: US (occurrence: US)
  Receive Date: 20140106
  Receipt Date: 20140106
  Transmission Date: 20141002
  Serious: No
  Sender: FDA-Public Use
  Company Number: US-PFIZER INC-2014001319

PATIENT
  Age: 75 Year
  Sex: Male

DRUGS (3)
  1. LIPITOR [Suspect]
     Indication: BLOOD CHOLESTEROL INCREASED
     Dosage: 80 MG, ONCE A DAY
     Route: 048
     Dates: end: 2011
  2. LIPITOR [Suspect]
     Indication: CARDIAC DISORDER
     Dosage: 40 MG, ONCE A DAY
     Route: 048
     Dates: start: 2011
  3. PLAVIX [Concomitant]
     Indication: CARDIAC DISORDER
     Dosage: UNK

REACTIONS (4)
  - Asthenia [Unknown]
  - Hypokinesia [Unknown]
  - Muscular weakness [Unknown]
  - Tendon rupture [Unknown]
